FAERS Safety Report 9218272 (Version 3)
Quarter: 2013Q2

REPORT INFORMATION
  Report Type: Spontaneous
  Country: US (occurrence: US)
  Receive Date: 20130409
  Receipt Date: 20130507
  Transmission Date: 20140414
  Serious: Yes (Hospitalization, Disabling)
  Sender: FDA-Public Use
  Company Number: US-009507513-1304USA002877

PATIENT
  Sex: Male
  Weight: 61.22 kg

DRUGS (3)
  1. SINGULAIR [Suspect]
     Indication: ASTHMA
     Dosage: 5 MG, QD
     Route: 048
     Dates: start: 2007, end: 201304
  2. ZYRTEC [Concomitant]
  3. PROVENTIL [Concomitant]

REACTIONS (3)
  - Tonsillectomy [Unknown]
  - Anxiety [Not Recovered/Not Resolved]
  - Panic attack [Recovered/Resolved]
